FAERS Safety Report 9258123 (Version 5)
Quarter: 2019Q1

REPORT INFORMATION
  Report Type: Spontaneous
  Country: FR (occurrence: FR)
  Receive Date: 20130426
  Receipt Date: 20190219
  Transmission Date: 20190418
  Serious: Yes (Life-Threatening, Hospitalization, Other)
  Sender: FDA-Public Use
  Company Number: FR-009507513-1304FRA007962

PATIENT
  Age: 62 Year
  Sex: Female
  Weight: 79 kg

DRUGS (4)
  1. HOLOXAN [Suspect]
     Active Substance: IFOSFAMIDE
     Indication: SARCOMA
     Dosage: 3750 MG
     Route: 042
     Dates: start: 20130308, end: 20130310
  2. EMEND [Suspect]
     Active Substance: APREPITANT
     Dosage: 80 UNK, UNK
     Route: 048
     Dates: start: 20130310, end: 20130311
  3. UROMITEXAN [Suspect]
     Active Substance: MESNA
     Indication: PRODUCT USED FOR UNKNOWN INDICATION
     Dosage: 3750MG
     Route: 042
     Dates: start: 20130308, end: 20130310
  4. EMEND [Suspect]
     Active Substance: APREPITANT
     Indication: NAUSEA
     Dosage: 125 MILLIGRAM
     Route: 048
     Dates: start: 20130309, end: 20130309

REACTIONS (1)
  - Encephalopathy [Recovered/Resolved]

NARRATIVE: CASE EVENT DATE: 20130311
